FAERS Safety Report 4759195-2 (Version None)
Quarter: 2005Q3

REPORT INFORMATION
  Report Type: 
  Country: None (occurrence: None)
  Receive Date: 20050831
  Receipt Date: 20050812
  Transmission Date: 20060218
  Serious: Yes (Disabling)
  Sender: FDA-Public Use
  Company Number: GBS050717840

PATIENT
  Age: 51 Year
  Sex: Female

DRUGS (1)
  1. YENTREVE (DULOXETINE HYDROCHLORIDE) [Suspect]
     Indication: STRESS INCONTINENCE
     Dosage: 40 MG/2 DAY
     Dates: start: 20041101, end: 20050301

REACTIONS (4)
  - ANOREXIA [None]
  - DYSPHONIA [None]
  - LOSS OF LIBIDO [None]
  - WEIGHT DECREASED [None]
